FAERS Safety Report 14590746 (Version 1)
Quarter: 2018Q1

REPORT INFORMATION
  Report Type: Spontaneous
  Country: US (occurrence: US)
  Receive Date: 20180301
  Receipt Date: 20180301
  Transmission Date: 20180509
  Serious: Yes (Hospitalization)
  Sender: FDA-Public Use
  Company Number: None

PATIENT
  Age: 33 Year
  Sex: Female
  Weight: 140.4 kg

DRUGS (5)
  1. METHOTREXATE. [Suspect]
     Active Substance: METHOTREXATE
     Dates: end: 20171113
  2. CYCLOPHOSPHAMIDE. [Suspect]
     Active Substance: CYCLOPHOSPHAMIDE
     Dates: end: 20171106
  3. CYTARABINE. [Suspect]
     Active Substance: CYTARABINE
     Dates: end: 20171116
  4. MERCAPTOPURINE. [Suspect]
     Active Substance: MERCAPTOPURINE
     Dates: end: 20171119
  5. ONCASPAR [Suspect]
     Active Substance: PEGASPARGASE
     Dates: end: 20171120

REACTIONS (10)
  - Arthralgia [None]
  - Pyrexia [None]
  - Citrobacter test positive [None]
  - Neutrophil count decreased [None]
  - White blood cell count decreased [None]
  - Hypotension [None]
  - Pain [None]
  - Chills [None]
  - Papule [None]
  - Haemoglobin decreased [None]

NARRATIVE: CASE EVENT DATE: 20171127
